FAERS Safety Report 5963421-1 (Version None)
Quarter: 2008Q4

REPORT INFORMATION
  Report Type: 
  Country: None (occurrence: None)
  Receive Date: 20081121
  Receipt Date: 20081121
  Transmission Date: 20090506
  Serious: Yes (Life-Threatening)
  Sender: FDA-Public Use
  Company Number: None

PATIENT
  Age: 86 Year
  Sex: Female

DRUGS (11)
  1. WARFARIN SODIUM [Suspect]
     Indication: ATRIAL FIBRILLATION
     Dosage: 2.5MG PO DAILY
     Route: 048
     Dates: start: 20080731
  2. WARFARIN SODIUM [Suspect]
     Indication: ATRIAL FIBRILLATION
     Dosage: 2.5MG PO DAILY
     Route: 048
     Dates: start: 20080801
  3. WARFARIN SODIUM [Suspect]
     Indication: ATRIAL FIBRILLATION
     Dosage: 2.5MG PO DAILY
     Route: 048
     Dates: start: 20080804
  4. AMIODARONE HCL [Concomitant]
  5. AMPICILLIN [Concomitant]
  6. ASPIRIN [Concomitant]
  7. FENTANYL [Concomitant]
  8. HEPARIN [Concomitant]
  9. HYDROMORPHONE HCL [Concomitant]
  10. METOPROLOL TARTRATE [Concomitant]
  11. PREVACID [Concomitant]

REACTIONS (5)
  - CONDITION AGGRAVATED [None]
  - HAEMOGLOBIN DECREASED [None]
  - INTERNATIONAL NORMALISED RATIO INCREASED [None]
  - RECTAL HAEMORRHAGE [None]
  - VOMITING [None]
